FAERS Safety Report 9047138 (Version 1)
Quarter: 2013Q1

REPORT INFORMATION
  Report Type: Report from Study
  Country: US (occurrence: US)
  Receive Date: 20130130
  Receipt Date: 20130130
  Transmission Date: 20140127
  Serious: No
  Sender: FDA-Public Use
  Company Number: US-ABBOTT-12P-163-0976660-00

PATIENT
  Sex: Female
  Weight: 65.83 kg

DRUGS (12)
  1. HUMIRA [Suspect]
     Indication: RHEUMATOID ARTHRITIS
     Dates: start: 2010
  2. METHOTREXATE [Suspect]
     Indication: RHEUMATOID ARTHRITIS
  3. FOLIC ACID [Concomitant]
     Indication: VITAMIN SUPPLEMENTATION
  4. LIPITOR [Concomitant]
     Indication: BLOOD CHOLESTEROL INCREASED
  5. LIPITOR [Concomitant]
     Indication: BLOOD CHOLESTEROL INCREASED
  6. LISINOPRIL [Concomitant]
     Indication: HYPERTENSION
  7. PROTONIX [Concomitant]
     Indication: PROPHYLAXIS AGAINST GASTROINTESTINAL ULCER
  8. ASPIRIN [Concomitant]
     Indication: PROPHYLAXIS
  9. CO Q 10 [Concomitant]
     Indication: VITAMIN SUPPLEMENTATION
  10. EYE DROPS [Concomitant]
     Indication: GLAUCOMA
  11. LEVOTHYROXIN [Concomitant]
     Indication: HYPOTHYROIDISM
  12. CALCIUM [Concomitant]
     Indication: MINERAL SUPPLEMENTATION

REACTIONS (4)
  - Injury associated with device [Not Recovered/Not Resolved]
  - Rheumatoid arthritis [Not Recovered/Not Resolved]
  - Dysstasia [Not Recovered/Not Resolved]
  - Alopecia [Not Recovered/Not Resolved]
